FAERS Safety Report 16739641 (Version 3)
Quarter: 2019Q3

REPORT INFORMATION
  Report Type: Report from Study
  Country: AU (occurrence: AU)
  Receive Date: 20190826
  Receipt Date: 20190921
  Transmission Date: 20191005
  Serious: Yes (Hospitalization, Other)
  Sender: FDA-Public Use
  Company Number: AU-BRISTOL-MYERS SQUIBB COMPANY-BMS-2019-072230

PATIENT
  Age: 62 Year
  Sex: Male

DRUGS (8)
  1. IPILIMUMAB [Suspect]
     Active Substance: IPILIMUMAB
     Indication: PRODUCT USED FOR UNKNOWN INDICATION
     Dosage: 97 MILLIGRAM
     Route: 065
     Dates: start: 20190911
  2. SORBOLENE [Concomitant]
     Indication: PROPHYLAXIS
     Dosage: 1 OTHER
     Route: 061
     Dates: start: 20190718
  3. NIVOLUMAB [Suspect]
     Active Substance: NIVOLUMAB
     Indication: PRODUCT USED FOR UNKNOWN INDICATION
     Dosage: 240 MILLIGRAM
     Route: 065
     Dates: start: 20190911
  4. TERBINAFINE. [Concomitant]
     Active Substance: TERBINAFINE
     Indication: PROPHYLAXIS
     Dosage: UNK
     Route: 061
     Dates: start: 20190723
  5. AMLODIPINE [Concomitant]
     Active Substance: AMLODIPINE BESYLATE
     Indication: HYPERTENSION
     Dosage: 5 MILLIGRAM
     Route: 048
     Dates: start: 20190207
  6. NIVOLUMAB [Suspect]
     Active Substance: NIVOLUMAB
     Indication: RENAL CELL CARCINOMA
     Dosage: 240 MILLIGRAM,
     Route: 065
     Dates: start: 20180808, end: 20190710
  7. IPILIMUMAB [Suspect]
     Active Substance: IPILIMUMAB
     Indication: RENAL CELL CARCINOMA
     Dosage: 97 MILLIGRAM
     Route: 065
     Dates: start: 20190710, end: 20190710
  8. KENACOMB [GRAMICIDIN;NEOMYCIN SULFATE;NYSTATIN;TRIAMCINOLONE ACETONIDE [Concomitant]
     Indication: RASH
     Dosage: 1 OTHER
     Route: 061
     Dates: start: 20190619

REACTIONS (2)
  - Cellulitis [Recovered/Resolved]
  - Abscess limb [Recovering/Resolving]

NARRATIVE: CASE EVENT DATE: 20190718
